FAERS Safety Report 11539464 (Version 1)
Quarter: 2015Q3

REPORT INFORMATION
  Report Type: Spontaneous
  Country: US (occurrence: None)
  Receive Date: 20150922
  Receipt Date: 20150922
  Transmission Date: 20151125
  Serious: Yes (Hospitalization, Disabling, Other)
  Sender: FDA-Public Use
  Company Number: None

PATIENT
  Age: 55 Year
  Sex: Female
  Weight: 90.72 kg

DRUGS (10)
  1. ATORVASTATIN [Suspect]
     Active Substance: ATORVASTATIN
     Indication: BLOOD CHOLESTEROL INCREASED
     Dosage: 40 MG REDUCED TO 20 MG
     Route: 048
     Dates: start: 200501
  2. MYFORTIC [Concomitant]
     Active Substance: MYCOPHENOLATE SODIUM
  3. CLONIDINE. [Concomitant]
     Active Substance: CLONIDINE
  4. ATORVASTATIN [Concomitant]
     Active Substance: ATORVASTATIN
  5. PANTOPRAZOLE [Concomitant]
     Active Substance: PANTOPRAZOLE SODIUM
  6. AMITRIPTYLINE [Concomitant]
     Active Substance: AMITRIPTYLINE
  7. MYCOPHENOLATE [Concomitant]
     Active Substance: MYCOPHENOLIC ACID
  8. PACE MAKER [Concomitant]
  9. BUMETANIDE. [Concomitant]
     Active Substance: BUMETANIDE
  10. LEVOTHYROXINE. [Concomitant]
     Active Substance: LEVOTHYROXINE

REACTIONS (12)
  - Fatigue [None]
  - Abdominal pain [None]
  - Irritable bowel syndrome [None]
  - Blood cholesterol increased [None]
  - Swelling [None]
  - Dizziness [None]
  - Gastrooesophageal reflux disease [None]
  - Autoimmune disorder [None]
  - Pruritus [None]
  - Anaemia [None]
  - Nausea [None]
  - Vomiting [None]

NARRATIVE: CASE EVENT DATE: 200501
